FAERS Safety Report 21424438 (Version 3)
Quarter: 2022Q4

REPORT INFORMATION
  Report Type: Report from Study
  Country: US (occurrence: US)
  Receive Date: 20221007
  Receipt Date: 20221130
  Transmission Date: 20230112
  Serious: Yes (Hospitalization)
  Sender: FDA-Public Use
  Company Number: US-BIOGEN-2022BI01160499

PATIENT
  Age: 40 Year
  Sex: Female

DRUGS (1)
  1. TYSABRI [Suspect]
     Active Substance: NATALIZUMAB
     Indication: Multiple sclerosis
     Route: 050
     Dates: start: 20190403, end: 20221012

REACTIONS (2)
  - Metastatic squamous cell carcinoma [Not Recovered/Not Resolved]
  - Squamous cell carcinoma of head and neck [Not Recovered/Not Resolved]

NARRATIVE: CASE EVENT DATE: 20220831
